FAERS Safety Report 6693892-7 (Version None)
Quarter: 2010Q2

REPORT INFORMATION
  Report Type: 
  Country: None (occurrence: None)
  Receive Date: 20100423
  Receipt Date: 20100414
  Transmission Date: 20101027
  Serious: Yes (Other)
  Sender: FDA-Public Use
  Company Number: PHHY2010BR23891

PATIENT
  Sex: Female

DRUGS (5)
  1. METFORMIN HCL [Suspect]
     Indication: DIABETES MELLITUS
     Dosage: 500 MG, BID
     Route: 048
  2. METFORMIN HCL [Suspect]
     Dosage: 850 MG, 1 TABLET IN THE LUNCH AND 1 AT DINNER
     Route: 048
  3. METFORMIN HCL [Suspect]
     Dosage: 850 MG, TID, 1 MORNING, 1 AFTERNOON AND 1AT NIGHT
     Route: 048
     Dates: start: 20100301
  4. DIOVAN [Concomitant]
     Indication: HYPERTENSION
     Dosage: 80 MG, 1 TABLET IN THE MORNING
     Route: 048
  5. DIOVAN [Concomitant]
     Dosage: 160 MG, 1 TABLET IN THE MORNING
     Route: 048

REACTIONS (1)
  - BLOOD GLUCOSE INCREASED [None]
